FAERS Safety Report 7532873-8 (Version None)
Quarter: 2011Q2

REPORT INFORMATION
  Report Type: 
  Country: None (occurrence: None)
  Receive Date: 20110608
  Receipt Date: 20110603
  Transmission Date: 20111010
  Serious: Yes (Hospitalization, Other)
  Sender: FDA-Public Use
  Company Number: US-PFIZER INC-2011059004

PATIENT
  Sex: Male

DRUGS (5)
  1. CHANTIX [Suspect]
     Indication: CHRONIC OBSTRUCTIVE PULMONARY DISEASE
  2. LORTAB [Concomitant]
     Indication: NECK PAIN
     Dosage: UNK
     Dates: start: 19990101
  3. ADVAIR DISKUS 100/50 [Concomitant]
     Dosage: UNK
     Dates: start: 20020101
  4. CHANTIX [Suspect]
     Indication: SMOKING CESSATION THERAPY
     Dosage: 1 MG, 2X/DAY
     Dates: start: 20080530, end: 20100905
  5. LORTAB [Concomitant]
     Indication: PAIN IN EXTREMITY

REACTIONS (5)
  - PARANOIA [None]
  - INTENTIONAL OVERDOSE [None]
  - ANXIETY [None]
  - SUICIDE ATTEMPT [None]
  - DEPRESSION [None]
